FAERS Safety Report 5294517-8 (Version None)
Quarter: 2007Q2

REPORT INFORMATION
  Report Type: 
  Country: None (occurrence: None)
  Receive Date: 20070409
  Receipt Date: 20070409
  Transmission Date: 20071010
  Serious: Yes (Death, Life-Threatening, Hospitalization)
  Sender: FDA-Public Use
  Company Number: None

PATIENT
  Sex: Male
  Weight: 98.3 kg

DRUGS (2)
  1. FENTANYL [Suspect]
     Indication: SEDATION
     Dosage: ONCE IV
     Route: 042
     Dates: start: 20061213
  2. MIDAZOLAM IV [Suspect]
     Indication: SEDATION
     Dosage: ONCE IV
     Route: 042
     Dates: start: 20061213

REACTIONS (1)
  - CARDIO-RESPIRATORY ARREST [None]
